FAERS Safety Report 5473584-2 (Version None)
Quarter: 2007Q4

REPORT INFORMATION
  Report Type: 
  Country: None (occurrence: None)
  Receive Date: 20071001
  Receipt Date: 20070511
  Transmission Date: 20080405
  Serious: No
  Sender: FDA-Public Use
  Company Number: US-ASTRAZENECA-2007UW08101

PATIENT
  Age: 61 Year
  Sex: Female
  Weight: 82.7 kg

DRUGS (4)
  1. ARIMIDEX [Suspect]
     Indication: BREAST CANCER
     Route: 048
     Dates: start: 20020101
  2. ZYRTEC-D [Concomitant]
  3. FIORICET [Concomitant]
     Indication: MIGRAINE
     Dosage: 1-2 Q4-6 HOURS PRN
     Route: 048
  4. XANAX [Concomitant]
     Indication: ANXIETY
     Dosage: 1 TABLET PO TID PRN
     Route: 048

REACTIONS (7)
  - ARTHRALGIA [None]
  - BACK PAIN [None]
  - FEELING ABNORMAL [None]
  - HEADACHE [None]
  - MUSCULOSKELETAL PAIN [None]
  - NECK PAIN [None]
  - OSTEOPENIA [None]
